FAERS Safety Report 5513925-0 (Version None)
Quarter: 2007Q4

REPORT INFORMATION
  Report Type: 
  Country: None (occurrence: None)
  Receive Date: 20071113
  Receipt Date: 20071031
  Transmission Date: 20080405
  Serious: Yes (Death, Life-Threatening)
  Sender: FDA-Public Use
  Company Number: US-BRISTOL-MYERS SQUIBB COMPANY-13975370

PATIENT
  Age: 35 Year
  Sex: Female

DRUGS (3)
  1. SUSTIVA [Suspect]
     Route: 048
  2. DIDANOSINE [Suspect]
  3. ZIDOVUDINE [Suspect]

REACTIONS (2)
  - LACTIC ACIDOSIS [None]
  - PANCREATITIS HAEMORRHAGIC [None]
